FAERS Safety Report 7534621-4 (Version None)
Quarter: 2011Q2

REPORT INFORMATION
  Report Type: 
  Country: None (occurrence: None)
  Receive Date: 20110609
  Receipt Date: 20100629
  Transmission Date: 20111010
  Serious: Yes (Death, Hospitalization, Other)
  Sender: FDA-Public Use
  Company Number: PHHY2010US29122

PATIENT
  Sex: Male

DRUGS (9)
  1. BENZONATATE [Concomitant]
  2. METOPROLOL [Concomitant]
  3. SPIRIVA [Concomitant]
  4. AFINITOR [Suspect]
     Indication: RENAL CANCER
     Dosage: 10 MG, DAILY
     Route: 048
     Dates: start: 20100409, end: 20100428
  5. CLONIDINE [Concomitant]
  6. LISINOPRIL [Concomitant]
  7. COUMADIN [Concomitant]
  8. FLUTICASONE PROPIONATE [Concomitant]
  9. PROAIR (FLUTICASONE PROPIONATE) [Concomitant]

REACTIONS (8)
  - HERNIA [None]
  - ASTHENIA [None]
  - HAEMORRHAGE INTRACRANIAL [None]
  - MUSCULAR WEAKNESS [None]
  - PARESIS [None]
  - ALTERED STATE OF CONSCIOUSNESS [None]
  - UNRESPONSIVE TO STIMULI [None]
  - SPEECH DISORDER [None]
